FAERS Safety Report 13041234 (Version 1)
Quarter: 2016Q4

REPORT INFORMATION
  Report Type: Spontaneous
  Country: US (occurrence: US)
  Receive Date: 20161219
  Receipt Date: 20161219
  Transmission Date: 20170207
  Serious: No
  Sender: FDA-Public Use
  Company Number: US-ROCHE-1058521

PATIENT
  Age: 88 Year
  Sex: Female

DRUGS (4)
  1. ZELBORAF [Suspect]
     Active Substance: VEMURAFENIB
     Indication: METASTATIC MALIGNANT MELANOMA
     Route: 048
     Dates: start: 20120301
  2. ZELBORAF [Suspect]
     Active Substance: VEMURAFENIB
     Route: 048
  3. ZELBORAF [Suspect]
     Active Substance: VEMURAFENIB
     Route: 048
  4. ZELBORAF [Suspect]
     Active Substance: VEMURAFENIB
     Route: 048

REACTIONS (20)
  - Fatigue [Not Recovered/Not Resolved]
  - Rash pruritic [Not Recovered/Not Resolved]
  - Rash [Not Recovered/Not Resolved]
  - Gait disturbance [Unknown]
  - Visual impairment [Unknown]
  - Peripheral swelling [Unknown]
  - Asthenia [Not Recovered/Not Resolved]
  - Tremor [Not Recovered/Not Resolved]
  - Pain in extremity [Unknown]
  - Alopecia [Unknown]
  - Fatigue [Unknown]
  - Erythema [Unknown]
  - Cystitis [Unknown]
  - Nausea [Not Recovered/Not Resolved]
  - Rash generalised [Not Recovered/Not Resolved]
  - Mass [Unknown]
  - Dysuria [Unknown]
  - Muscular weakness [Unknown]
  - Myalgia [Unknown]
  - Rash [Unknown]

NARRATIVE: CASE EVENT DATE: 201203
